FAERS Safety Report 25068908 (Version 1)
Quarter: 2025Q1

REPORT INFORMATION
  Report Type: Spontaneous
  Country: US (occurrence: None)
  Receive Date: 20250312
  Receipt Date: 20250312
  Transmission Date: 20250409
  Serious: Yes (Other)
  Sender: FDA-CTU
  Company Number: None

PATIENT
  Age: 34 Year
  Sex: Female
  Weight: 73.94 kg

DRUGS (6)
  1. QUETIAPINE [Suspect]
     Active Substance: QUETIAPINE
     Indication: Product used for unknown indication
     Dates: start: 20220411
  2. TRAZODONE [Suspect]
     Active Substance: TRAZODONE HYDROCHLORIDE
     Dates: start: 20211122
  3. BUPROPION HYDROCHLORIDE [Suspect]
     Active Substance: BUPROPION HYDROCHLORIDE
     Dates: start: 20210927
  4. LORAZEPAM [Suspect]
     Active Substance: LORAZEPAM
     Dates: start: 20210927
  5. AMOXICILLIN [Suspect]
     Active Substance: AMOXICILLIN
  6. AZITHROMYCIN [Suspect]
     Active Substance: AZITHROMYCIN

REACTIONS (3)
  - Caesarean section [None]
  - Arrested labour [None]
  - Failed trial of labour [None]

NARRATIVE: CASE EVENT DATE: 20220626
